FAERS Safety Report 10739119 (Version 3)
Quarter: 2016Q2

REPORT INFORMATION
  Report Type: Report from Study
  Country: US (occurrence: US)
  Receive Date: 20150126
  Receipt Date: 20160603
  Transmission Date: 20160815
  Serious: No
  Sender: FDA-Public Use
  Company Number: US-GILEAD-2015-0132783

PATIENT
  Age: 54 Year
  Sex: Female

DRUGS (2)
  1. LEDIPASVIR/SOFOSBUVIR [Suspect]
     Active Substance: LEDIPASVIR\SOFOSBUVIR
     Indication: HEPATITIS C
     Dosage: UNK
     Route: 065
     Dates: start: 20141203, end: 201412
  2. LEDIPASVIR/SOFOSBUVIR [Suspect]
     Active Substance: LEDIPASVIR\SOFOSBUVIR
     Dosage: 1 DF, QD
     Route: 048
     Dates: start: 20160303

REACTIONS (4)
  - Abdominal distension [Unknown]
  - Flatulence [Unknown]
  - Abdominal pain upper [Unknown]
  - Abdominal pain [Unknown]

NARRATIVE: CASE EVENT DATE: 20141214
